FAERS Safety Report 4305958-7 (Version None)
Quarter: 2004Q1

REPORT INFORMATION
  Report Type: 
  Country: None (occurrence: None)
  Receive Date: 20040225
  Receipt Date: 20040218
  Transmission Date: 20041129
  Serious: Yes (Hospitalization)
  Sender: FDA-Public Use
  Company Number: 2004CG00015

PATIENT
  Age: 64 Year
  Sex: Male

DRUGS (7)
  1. TENORMIN [Suspect]
     Dosage: 100 MG QD PO
     Route: 048
     Dates: start: 20030201, end: 20030520
  2. CORDARONE [Suspect]
     Dates: start: 20030201, end: 20030520
  3. IMOVANE [Concomitant]
  4. PREVISCAN [Concomitant]
  5. ZYLORIC    GLAXO WELLCOME [Concomitant]
  6. LASILIX [Concomitant]
  7. DIFFU K [Concomitant]

REACTIONS (4)
  - BRADYCARDIA [None]
  - CARDIAC FLUTTER [None]
  - DRUG INTERACTION [None]
  - SYNCOPE [None]
